FAERS Safety Report 25276256 (Version 1)
Quarter: 2025Q2

REPORT INFORMATION
  Report Type: Spontaneous
  Country: CZ (occurrence: CZ)
  Receive Date: 20250507
  Receipt Date: 20250507
  Transmission Date: 20250716
  Serious: Yes (Hospitalization, Other)
  Sender: CELLTRION
  Company Number: CZ-AMGEN-CZESP2024211311

PATIENT

DRUGS (7)
  1. ADALIMUMAB [Suspect]
     Active Substance: ADALIMUMAB
     Indication: Uveitis
     Route: 065
  2. PREDNISONE [Concomitant]
     Active Substance: PREDNISONE
     Indication: Ankylosing spondylitis
     Route: 065
  3. PREDNISONE [Concomitant]
     Active Substance: PREDNISONE
     Route: 065
  4. PREDNISONE [Concomitant]
     Active Substance: PREDNISONE
     Route: 065
  5. SULFASALAZINE [Concomitant]
     Active Substance: SULFASALAZINE
  6. SULFASALAZINE [Concomitant]
     Active Substance: SULFASALAZINE
  7. SULFASALAZINE [Concomitant]
     Active Substance: SULFASALAZINE

REACTIONS (8)
  - Ankylosing spondylitis [Unknown]
  - Erythema nodosum [Unknown]
  - Uveitis [Recovered/Resolved]
  - Vasculitis necrotising [Recovered/Resolved]
  - Diarrhoea [Unknown]
  - Arthritis [Unknown]
  - Pustular psoriasis [Unknown]
  - Anaemia [Unknown]

NARRATIVE: CASE EVENT DATE: 20190901
